FAERS Safety Report 9702366 (Version 1)
Quarter: 2013Q4

REPORT INFORMATION
  Report Type: Spontaneous
  Country: US (occurrence: US)
  Receive Date: 20131121
  Receipt Date: 20131121
  Transmission Date: 20140711
  Serious: Yes (Other)
  Sender: FDA-Public Use
  Company Number: US-PFIZER INC-2013331938

PATIENT
  Sex: Female

DRUGS (3)
  1. ZIPRASIDONE HCL [Suspect]
     Dosage: 40 MG, UNK
  2. CITALOPRAM [Suspect]
     Dosage: UNK
  3. CLOZAPINE [Suspect]
     Dosage: UNK

REACTIONS (2)
  - Hallucination, auditory [Unknown]
  - Drug effect decreased [Unknown]
